FAERS Safety Report 10176674 (Version 2)
Quarter: 2014Q2

REPORT INFORMATION
  Report Type: Report from Study
  Country: JP (occurrence: JP)
  Receive Date: 20140516
  Receipt Date: 20140516
  Transmission Date: 20141212
  Serious: Yes (Death, Hospitalization, Other)
  Sender: FDA-Public Use
  Company Number: JP-SA-2014SA011308

PATIENT
  Age: 71 Year
  Sex: Male
  Weight: 55.5 kg

DRUGS (4)
  1. PLAVIX [Suspect]
     Indication: PERIPHERAL ARTERIAL OCCLUSIVE DISEASE
     Route: 048
     Dates: start: 20130527, end: 20140116
  2. BERAPROST SODIUM [Concomitant]
     Route: 048
     Dates: start: 20130527, end: 20140116
  3. DIOVAN [Concomitant]
     Route: 048
     Dates: end: 20140116
  4. ARTIST [Concomitant]
     Route: 048
     Dates: end: 20140116

REACTIONS (3)
  - Sudden death [Fatal]
  - Device related infection [Recovered/Resolved]
  - Intermittent claudication [Not Recovered/Not Resolved]
